FAERS Safety Report 12874232 (Version 1)
Quarter: 2016Q4

REPORT INFORMATION
  Report Type: Spontaneous
  Country: US (occurrence: US)
  Receive Date: 20161021
  Receipt Date: 20161021
  Transmission Date: 20170207
  Serious: No
  Sender: FDA-Public Use
  Company Number: US-BAYER-2016-199411

PATIENT
  Age: 82 Year
  Sex: Male
  Weight: 68.27 kg

DRUGS (1)
  1. ALEVE [Suspect]
     Active Substance: NAPROXEN SODIUM
     Indication: PAIN
     Dosage: 2 DF, UNK
     Route: 048
     Dates: start: 2006

REACTIONS (5)
  - Arthralgia [Recovered/Resolved]
  - Device ineffective [Unknown]
  - Dizziness [Not Recovered/Not Resolved]
  - Product use issue [None]
  - Product use issue [Unknown]

NARRATIVE: CASE EVENT DATE: 20161001
